FAERS Safety Report 10357022 (Version 7)
Quarter: 2018Q2

REPORT INFORMATION
  Report Type: Spontaneous
  Country: JP (occurrence: JP)
  Receive Date: 20140801
  Receipt Date: 20180510
  Transmission Date: 20180711
  Serious: Yes (Hospitalization)
  Sender: FDA-Public Use
  Company Number: JP-CELGENEUS-087-21880-14074110

PATIENT
  Age: 59 Year
  Sex: Male
  Weight: 94 kg

DRUGS (135)
  1. REVLIMID [Suspect]
     Active Substance: LENALIDOMIDE
     Indication: PLASMA CELL MYELOMA RECURRENT
     Dosage: 15 MILLIGRAM
     Route: 048
     Dates: start: 20120725
  2. REVLIMID [Suspect]
     Active Substance: LENALIDOMIDE
     Dosage: 10 MILLIGRAM
     Route: 048
     Dates: start: 20140820
  3. ELOTUZUMAB. [Suspect]
     Active Substance: ELOTUZUMAB
     Indication: PLASMA CELL MYELOMA
     Dosage: 10 MILLIGRAM/KILOGRAM
     Route: 041
     Dates: start: 20120725, end: 20120725
  4. ACETAMINOPHEN. [Concomitant]
     Active Substance: ACETAMINOPHEN
     Route: 065
     Dates: start: 20131005
  5. LEVOFLOXACIN HEMIHYDRATE [Concomitant]
     Active Substance: LEVOFLOXACIN
     Route: 065
     Dates: start: 20150403, end: 20150407
  6. LEVOFLOXACIN HEMIHYDRATE [Concomitant]
     Active Substance: LEVOFLOXACIN
     Route: 065
     Dates: start: 20151001
  7. LEVOFLOXACIN HEMIHYDRATE [Concomitant]
     Active Substance: LEVOFLOXACIN
     Route: 065
     Dates: start: 20151209, end: 20151219
  8. LEVOFLOXACIN HEMIHYDRATE [Concomitant]
     Active Substance: LEVOFLOXACIN
     Route: 065
     Dates: start: 20160204, end: 20160217
  9. LANSOPRAZOLE. [Concomitant]
     Active Substance: LANSOPRAZOLE
     Indication: PRODUCT USED FOR UNKNOWN INDICATION
     Route: 065
     Dates: start: 20120725
  10. TRIAMCINOLONE ACETONIDE. [Concomitant]
     Active Substance: TRIAMCINOLONE ACETONIDE
     Indication: PRODUCT USED FOR UNKNOWN INDICATION
     Route: 065
     Dates: start: 20130109
  11. SOLACET F [Concomitant]
     Indication: ADVERSE EVENT
     Route: 065
     Dates: start: 20140625, end: 20140625
  12. KAIGEN [Concomitant]
     Active Substance: ACETAMINOPHEN\CAFFEINE\CINNAMON\GINGER\GLYCYRRHIZA GLABRA\METHYLEPHEDRINE HYDROCHLORIDE, (+/-)-
     Indication: ADVERSE EVENT
     Route: 065
     Dates: start: 20140914, end: 20140916
  13. EPRAZINONE HYDROCHLORIDE [Concomitant]
     Active Substance: EPRAZINONE HYDROCHLORIDE
     Indication: ADVERSE EVENT
     Route: 065
     Dates: start: 20150107
  14. EPRAZINONE HYDROCHLORIDE [Concomitant]
     Active Substance: EPRAZINONE HYDROCHLORIDE
     Route: 065
     Dates: start: 20150624
  15. CARBOCISTEINE [Concomitant]
     Active Substance: CARBOCYSTEINE
     Route: 065
     Dates: start: 20160327, end: 20160413
  16. CARBOCISTEINE [Concomitant]
     Active Substance: CARBOCYSTEINE
     Route: 065
     Dates: start: 20170913, end: 20170927
  17. AZUNOL [Concomitant]
     Active Substance: SODIUM GUALENATE
     Route: 065
     Dates: start: 20170830, end: 20170927
  18. DORZOLAMIDE HYDROCHLORIDE-TIMOLOL MALEATE [Concomitant]
     Active Substance: DORZOLAMIDE HYDROCHLORIDE\TIMOLOL MALEATE
     Indication: ADVERSE EVENT
     Route: 065
     Dates: start: 20151002, end: 20160217
  19. BETAMETHASONE SODIUM PHOSPHATE [Concomitant]
     Active Substance: BETAMETHASONE SODIUM PHOSPHATE
     Indication: PRODUCT USED FOR UNKNOWN INDICATION
     Route: 065
     Dates: start: 20151001, end: 20160217
  20. DEXAMETHASONE. [Suspect]
     Active Substance: DEXAMETHASONE
     Indication: PLASMA CELL MYELOMA
     Dosage: 8 MILLIGRAM
     Route: 041
     Dates: start: 20120725, end: 20130326
  21. ACETAMINOPHEN. [Concomitant]
     Active Substance: ACETAMINOPHEN
     Route: 065
     Dates: start: 20131122, end: 20131123
  22. LEVOFLOXACIN HEMIHYDRATE [Concomitant]
     Active Substance: LEVOFLOXACIN
     Route: 048
     Dates: start: 20140917, end: 20140924
  23. LEVOFLOXACIN HEMIHYDRATE [Concomitant]
     Active Substance: LEVOFLOXACIN
     Route: 065
     Dates: start: 20141210, end: 20141210
  24. LEVOFLOXACIN HEMIHYDRATE [Concomitant]
     Active Substance: LEVOFLOXACIN
     Route: 065
     Dates: start: 20150624, end: 20150630
  25. AMLODIPINE BESYLATE. [Concomitant]
     Active Substance: AMLODIPINE BESYLATE
     Indication: PRODUCT USED FOR UNKNOWN INDICATION
     Route: 065
     Dates: start: 2003
  26. MOMETASONE FUROATE. [Concomitant]
     Active Substance: MOMETASONE FUROATE
     Indication: PRODUCT USED FOR UNKNOWN INDICATION
     Route: 065
     Dates: start: 201106
  27. FAMOTIDINE. [Concomitant]
     Active Substance: FAMOTIDINE
     Indication: ADVERSE EVENT
     Route: 065
     Dates: start: 20140802, end: 20140802
  28. KAIGEN [Concomitant]
     Active Substance: ACETAMINOPHEN\CAFFEINE\CINNAMON\GINGER\GLYCYRRHIZA GLABRA\METHYLEPHEDRINE HYDROCHLORIDE, (+/-)-
     Route: 065
     Dates: start: 20150622, end: 20150623
  29. KAIGEN [Concomitant]
     Active Substance: ACETAMINOPHEN\CAFFEINE\CINNAMON\GINGER\GLYCYRRHIZA GLABRA\METHYLEPHEDRINE HYDROCHLORIDE, (+/-)-
     Route: 065
     Dates: start: 20160524, end: 20160605
  30. KAIGEN [Concomitant]
     Active Substance: ACETAMINOPHEN\CAFFEINE\CINNAMON\GINGER\GLYCYRRHIZA GLABRA\METHYLEPHEDRINE HYDROCHLORIDE, (+/-)-
     Route: 065
     Dates: start: 20160727, end: 20160802
  31. CARBOCISTEINE [Concomitant]
     Active Substance: CARBOCYSTEINE
     Route: 065
     Dates: start: 20160127, end: 20160129
  32. FUROSEMIDE. [Concomitant]
     Active Substance: FUROSEMIDE
     Indication: PRODUCT USED FOR UNKNOWN INDICATION
     Route: 065
     Dates: start: 20160120, end: 20160120
  33. CLOSTRIDIUM BUTYRICUM [Concomitant]
     Active Substance: CLOSTRIDIUM BUTYRICUM SPORES STRAIN M-55
     Indication: ADVERSE EVENT
     Route: 065
     Dates: start: 20160131, end: 20160211
  34. DEXTROMETHORPHAN HYDROBROMIDE HYDRATE [Concomitant]
     Active Substance: DEXTROMETHORPHAN HYDROBROMIDE
     Indication: ADVERSE EVENT
     Route: 065
     Dates: start: 20160201, end: 20160211
  35. DEXAMETHASONE. [Suspect]
     Active Substance: DEXAMETHASONE
     Dosage: 8 MILLIGRAM
     Route: 041
     Dates: start: 20140820
  36. ELOTUZUMAB. [Suspect]
     Active Substance: ELOTUZUMAB
     Dosage: 10 MILLIGRAM/KILOGRAM
     Route: 041
     Dates: start: 20120725, end: 20130326
  37. LENADEX [Suspect]
     Active Substance: DEXAMETHASONE ACETATE
     Dosage: 28 MILLIGRAM
     Route: 048
     Dates: start: 20140820
  38. TAKEPRON [Concomitant]
     Active Substance: LANSOPRAZOLE
     Indication: PRODUCT USED FOR UNKNOWN INDICATION
     Route: 065
     Dates: start: 20120725, end: 20140724
  39. BROTIZOLAM [Concomitant]
     Active Substance: BROTIZOLAM
     Indication: ADVERSE EVENT
     Route: 065
     Dates: start: 20130918, end: 20180411
  40. ACETAMINOPHEN. [Concomitant]
     Active Substance: ACETAMINOPHEN
     Route: 065
     Dates: start: 20140215, end: 20140215
  41. ACETAMINOPHEN. [Concomitant]
     Active Substance: ACETAMINOPHEN
     Route: 065
     Dates: start: 20160130, end: 20160131
  42. ACETAMINOPHEN. [Concomitant]
     Active Substance: ACETAMINOPHEN
     Route: 065
     Dates: start: 20161207, end: 20161214
  43. TENELIGIPTIN HYDROBROMIDE HYDRATE [Concomitant]
     Indication: ADVERSE EVENT
     Route: 065
     Dates: start: 20140112, end: 20140809
  44. LEVOFLOXACIN HEMIHYDRATE [Concomitant]
     Active Substance: LEVOFLOXACIN
     Route: 065
     Dates: start: 20150121, end: 20150123
  45. SOLDEM 3A [Concomitant]
     Active Substance: CARBOHYDRATES\POTASSIUM CHLORIDE\SODIUM CHLORIDE\SODIUM LACTATE
     Route: 065
     Dates: start: 20160130, end: 20160201
  46. HYDROXYZINE HYDROCHLORIDE. [Concomitant]
     Active Substance: HYDROXYZINE HYDROCHLORIDE
     Indication: ADVERSE EVENT
     Route: 065
     Dates: start: 20140720, end: 20140725
  47. LACTEC [Concomitant]
     Active Substance: CALCIUM CHLORIDE ANHYDROUS\POTASSIUM CHLORIDE\SODIUM CHLORIDE\SODIUM LACTATE
     Indication: ADVERSE EVENT
     Route: 050
     Dates: start: 20140721, end: 20140721
  48. POTASSIUM ASPARTATE [Concomitant]
     Active Substance: POTASSIUM ASPARTATE
     Indication: ADVERSE EVENT
     Route: 050
     Dates: start: 20140721, end: 20140728
  49. MIYA-BM [Concomitant]
     Active Substance: CLOSTRIDIUM BUTYRICUM SPORES STRAIN M-55
     Indication: ADVERSE EVENT
     Route: 065
     Dates: start: 20140514, end: 20140722
  50. MIYA-BM [Concomitant]
     Active Substance: CLOSTRIDIUM BUTYRICUM SPORES STRAIN M-55
     Route: 065
     Dates: start: 20150916, end: 20151014
  51. KAIGEN [Concomitant]
     Active Substance: ACETAMINOPHEN\CAFFEINE\CINNAMON\GINGER\GLYCYRRHIZA GLABRA\METHYLEPHEDRINE HYDROCHLORIDE, (+/-)-
     Route: 065
     Dates: start: 20141205, end: 20141210
  52. KAIGEN [Concomitant]
     Active Substance: ACETAMINOPHEN\CAFFEINE\CINNAMON\GINGER\GLYCYRRHIZA GLABRA\METHYLEPHEDRINE HYDROCHLORIDE, (+/-)-
     Route: 065
     Dates: start: 20150331, end: 20150331
  53. KAIGEN [Concomitant]
     Active Substance: ACETAMINOPHEN\CAFFEINE\CINNAMON\GINGER\GLYCYRRHIZA GLABRA\METHYLEPHEDRINE HYDROCHLORIDE, (+/-)-
     Route: 065
     Dates: start: 20161126, end: 20161128
  54. KAIGEN [Concomitant]
     Active Substance: ACETAMINOPHEN\CAFFEINE\CINNAMON\GINGER\GLYCYRRHIZA GLABRA\METHYLEPHEDRINE HYDROCHLORIDE, (+/-)-
     Route: 065
     Dates: start: 20170115, end: 20170116
  55. EPRAZINONE HYDROCHLORIDE [Concomitant]
     Active Substance: EPRAZINONE HYDROCHLORIDE
     Route: 065
     Dates: start: 20160327, end: 20160413
  56. FLUOROMETHOLONE. [Concomitant]
     Active Substance: FLUOROMETHOLONE
     Route: 065
     Dates: start: 20170913
  57. DEXAMETHASONE. [Suspect]
     Active Substance: DEXAMETHASONE
     Indication: PLASMA CELL MYELOMA RECURRENT
     Dosage: 8 MILLIGRAM
     Route: 041
     Dates: start: 20120709, end: 20120709
  58. BAYASPIRIN [Concomitant]
     Active Substance: ASPIRIN
     Indication: PRODUCT USED FOR UNKNOWN INDICATION
     Route: 065
     Dates: start: 20120725
  59. KENALOG [Concomitant]
     Active Substance: TRIAMCINOLONE ACETONIDE
     Indication: ADVERSE EVENT
     Route: 065
     Dates: start: 20130109, end: 20170510
  60. NORVASC [Concomitant]
     Active Substance: AMLODIPINE BESYLATE
     Indication: PRODUCT USED FOR UNKNOWN INDICATION
     Route: 065
     Dates: start: 2003
  61. LIPITOR [Concomitant]
     Active Substance: ATORVASTATIN CALCIUM
     Indication: PRODUCT USED FOR UNKNOWN INDICATION
     Route: 065
     Dates: start: 2003
  62. ACETAMINOPHEN. [Concomitant]
     Active Substance: ACETAMINOPHEN
     Route: 065
     Dates: start: 20140914, end: 20140915
  63. LEVOFLOXACIN HEMIHYDRATE [Concomitant]
     Active Substance: LEVOFLOXACIN
     Indication: PRODUCT USED FOR UNKNOWN INDICATION
     Route: 048
     Dates: start: 20140717, end: 20140720
  64. ALLOPURINOL. [Concomitant]
     Active Substance: ALLOPURINOL
     Indication: PRODUCT USED FOR UNKNOWN INDICATION
     Route: 065
     Dates: start: 2003
  65. SOLACET F [Concomitant]
     Route: 065
     Dates: start: 20140803, end: 20140803
  66. SOLDEM 3A [Concomitant]
     Active Substance: CARBOHYDRATES\POTASSIUM CHLORIDE\SODIUM CHLORIDE\SODIUM LACTATE
     Indication: ADVERSE EVENT
     Route: 065
     Dates: start: 20140720, end: 20140730
  67. KCL [Concomitant]
     Active Substance: POTASSIUM CHLORIDE
     Indication: ADVERSE EVENT
     Route: 050
     Dates: start: 20140721, end: 20140721
  68. MIYA-BM [Concomitant]
     Active Substance: CLOSTRIDIUM BUTYRICUM SPORES STRAIN M-55
     Route: 065
     Dates: start: 20150121, end: 20150129
  69. PHELLOBERIN [Concomitant]
     Active Substance: BERBERINE\GERANIUM
     Indication: ADVERSE EVENT
     Route: 065
     Dates: start: 20140730, end: 20140815
  70. PL [Concomitant]
     Active Substance: ACETAMINOPHEN\CAFFEINE\PROMETHAZINE\SALICYLAMIDE
     Route: 065
     Dates: start: 20140915, end: 20141022
  71. PL [Concomitant]
     Active Substance: ACETAMINOPHEN\CAFFEINE\PROMETHAZINE\SALICYLAMIDE
     Route: 065
     Dates: start: 20160127, end: 20160129
  72. INAVIR [Concomitant]
     Indication: ADVERSE EVENT
     Route: 065
     Dates: start: 20150104, end: 20150104
  73. EPRAZINONE HYDROCHLORIDE [Concomitant]
     Active Substance: EPRAZINONE HYDROCHLORIDE
     Route: 065
     Dates: start: 20140924, end: 20141001
  74. EPRAZINONE HYDROCHLORIDE [Concomitant]
     Active Substance: EPRAZINONE HYDROCHLORIDE
     Route: 065
     Dates: start: 20151209, end: 20151223
  75. CARBOCISTEINE [Concomitant]
     Active Substance: CARBOCYSTEINE
     Indication: ADVERSE EVENT
     Route: 065
     Dates: start: 20150107
  76. FLUOROMETHOLONE. [Concomitant]
     Active Substance: FLUOROMETHOLONE
     Indication: PRODUCT USED FOR UNKNOWN INDICATION
     Route: 065
     Dates: start: 20151009, end: 20160217
  77. SHAKUYAKUKANZOTO [Concomitant]
     Active Substance: HERBALS
     Indication: PRODUCT USED FOR UNKNOWN INDICATION
     Route: 065
     Dates: start: 20130529
  78. LEVOFLOXACIN HEMIHYDRATE [Concomitant]
     Active Substance: LEVOFLOXACIN
     Route: 065
     Dates: start: 20160330, end: 20160412
  79. LEVOFLOXACIN HEMIHYDRATE [Concomitant]
     Active Substance: LEVOFLOXACIN
     Route: 065
     Dates: start: 20170902, end: 20170927
  80. KAIGEN [Concomitant]
     Active Substance: ACETAMINOPHEN\CAFFEINE\CINNAMON\GINGER\GLYCYRRHIZA GLABRA\METHYLEPHEDRINE HYDROCHLORIDE, (+/-)-
     Route: 065
     Dates: start: 20141011, end: 20141013
  81. KAIGEN [Concomitant]
     Active Substance: ACETAMINOPHEN\CAFFEINE\CINNAMON\GINGER\GLYCYRRHIZA GLABRA\METHYLEPHEDRINE HYDROCHLORIDE, (+/-)-
     Route: 065
     Dates: start: 20160811, end: 20160815
  82. PL [Concomitant]
     Active Substance: ACETAMINOPHEN\CAFFEINE\PROMETHAZINE\SALICYLAMIDE
     Indication: ADVERSE EVENT
     Route: 065
     Dates: start: 20140305, end: 20140312
  83. PL [Concomitant]
     Active Substance: ACETAMINOPHEN\CAFFEINE\PROMETHAZINE\SALICYLAMIDE
     Route: 065
     Dates: start: 20160327, end: 20160330
  84. PL [Concomitant]
     Active Substance: ACETAMINOPHEN\CAFFEINE\PROMETHAZINE\SALICYLAMIDE
     Route: 065
     Dates: start: 20161221, end: 20170111
  85. CARBOCISTEINE [Concomitant]
     Active Substance: CARBOCYSTEINE
     Route: 065
     Dates: start: 20151209, end: 20151223
  86. CEFDINIR. [Concomitant]
     Active Substance: CEFDINIR
     Indication: ADVERSE EVENT
     Route: 065
     Dates: start: 20150610, end: 20150619
  87. ACETATED RINGER^S SOLUTION [Concomitant]
     Indication: ADVERSE EVENT
     Route: 065
     Dates: start: 20160130, end: 20160130
  88. TAZOBACTAM SODIUM/PIPERACILLIN SODIUM [Concomitant]
     Active Substance: PIPERACILLIN SODIUM\TAZOBACTAM SODIUM
     Indication: ADVERSE EVENT
     Route: 065
     Dates: start: 20160130, end: 20160204
  89. REVLIMID [Suspect]
     Active Substance: LENALIDOMIDE
     Indication: PLASMA CELL MYELOMA
     Dosage: 25 MILLIGRAM
     Route: 048
     Dates: start: 20120822, end: 20120911
  90. ALLEGRA [Concomitant]
     Active Substance: FEXOFENADINE HYDROCHLORIDE
     Route: 065
     Dates: start: 20121101
  91. FLURBIPROFEN. [Concomitant]
     Active Substance: FLURBIPROFEN
     Indication: PRODUCT USED FOR UNKNOWN INDICATION
     Route: 065
     Dates: start: 20130905
  92. ACETAMINOPHEN. [Concomitant]
     Active Substance: ACETAMINOPHEN
     Indication: ADVERSE EVENT
     Route: 065
     Dates: start: 20130223, end: 20130314
  93. LEVOFLOXACIN HEMIHYDRATE [Concomitant]
     Active Substance: LEVOFLOXACIN
     Route: 065
     Dates: start: 20161207, end: 20161214
  94. MIYA-BM [Concomitant]
     Active Substance: CLOSTRIDIUM BUTYRICUM SPORES STRAIN M-55
     Route: 065
     Dates: start: 20140724, end: 20140731
  95. RABEPRAZOLE SODIUM. [Concomitant]
     Active Substance: RABEPRAZOLE SODIUM
     Indication: PRODUCT USED FOR UNKNOWN INDICATION
     Route: 065
     Dates: start: 20140802
  96. MAALOX ANTACID [Concomitant]
     Active Substance: ALUMINUM HYDROXIDE\DIMETHICONE\MAGNESIUM HYDROXIDE
     Indication: ADVERSE EVENT
     Route: 065
     Dates: start: 20140802, end: 20140802
  97. METOCLOPRAMIDE HYDROCHLORIDE. [Concomitant]
     Active Substance: METOCLOPRAMIDE HYDROCHLORIDE
     Indication: ADVERSE EVENT
     Route: 065
     Dates: start: 20140803, end: 20140803
  98. KAIGEN [Concomitant]
     Active Substance: ACETAMINOPHEN\CAFFEINE\CINNAMON\GINGER\GLYCYRRHIZA GLABRA\METHYLEPHEDRINE HYDROCHLORIDE, (+/-)-
     Route: 065
     Dates: start: 20141231, end: 20141231
  99. KAIGEN [Concomitant]
     Active Substance: ACETAMINOPHEN\CAFFEINE\CINNAMON\GINGER\GLYCYRRHIZA GLABRA\METHYLEPHEDRINE HYDROCHLORIDE, (+/-)-
     Route: 065
     Dates: start: 20150403, end: 20150408
  100. KAIGEN [Concomitant]
     Active Substance: ACETAMINOPHEN\CAFFEINE\CINNAMON\GINGER\GLYCYRRHIZA GLABRA\METHYLEPHEDRINE HYDROCHLORIDE, (+/-)-
     Route: 065
     Dates: start: 20150607, end: 20150609
  101. KAIGEN [Concomitant]
     Active Substance: ACETAMINOPHEN\CAFFEINE\CINNAMON\GINGER\GLYCYRRHIZA GLABRA\METHYLEPHEDRINE HYDROCHLORIDE, (+/-)-
     Route: 065
     Dates: start: 20151208, end: 20151208
  102. KAIGEN [Concomitant]
     Active Substance: ACETAMINOPHEN\CAFFEINE\CINNAMON\GINGER\GLYCYRRHIZA GLABRA\METHYLEPHEDRINE HYDROCHLORIDE, (+/-)-
     Route: 065
     Dates: start: 20160125, end: 20160126
  103. KAIGEN [Concomitant]
     Active Substance: ACETAMINOPHEN\CAFFEINE\CINNAMON\GINGER\GLYCYRRHIZA GLABRA\METHYLEPHEDRINE HYDROCHLORIDE, (+/-)-
     Route: 065
     Dates: start: 20161023, end: 20161024
  104. KAIGEN [Concomitant]
     Active Substance: ACETAMINOPHEN\CAFFEINE\CINNAMON\GINGER\GLYCYRRHIZA GLABRA\METHYLEPHEDRINE HYDROCHLORIDE, (+/-)-
     Route: 065
     Dates: start: 20170307, end: 20170315
  105. PL [Concomitant]
     Active Substance: ACETAMINOPHEN\CAFFEINE\PROMETHAZINE\SALICYLAMIDE
     Route: 065
     Dates: start: 20150610, end: 20150615
  106. EPRAZINONE HYDROCHLORIDE [Concomitant]
     Active Substance: EPRAZINONE HYDROCHLORIDE
     Route: 065
     Dates: start: 20170913, end: 20170927
  107. CARBOCISTEINE [Concomitant]
     Active Substance: CARBOCYSTEINE
     Route: 065
     Dates: start: 20150624
  108. CARBOCISTEINE [Concomitant]
     Active Substance: CARBOCYSTEINE
     Route: 065
     Dates: start: 20161221, end: 20170111
  109. REVLIMID [Suspect]
     Active Substance: LENALIDOMIDE
     Dosage: 10 MILLIGRAM
     Route: 048
  110. REVLIMID [Suspect]
     Active Substance: LENALIDOMIDE
     Dosage: 15 MILLIGRAM
     Route: 048
     Dates: start: 20120725
  111. ELOTUZUMAB. [Suspect]
     Active Substance: ELOTUZUMAB
     Indication: PLASMA CELL MYELOMA RECURRENT
     Dosage: 872 MILLIGRAM
     Route: 041
     Dates: start: 20120709, end: 20120709
  112. LENADEX [Suspect]
     Active Substance: DEXAMETHASONE ACETATE
     Indication: PLASMA CELL MYELOMA RECURRENT
     Dosage: 28 MILLIGRAM
     Route: 048
     Dates: start: 20120725, end: 20130319
  113. ZYLORIC [Concomitant]
     Active Substance: ALLOPURINOL
     Indication: PRODUCT USED FOR UNKNOWN INDICATION
     Route: 065
     Dates: start: 2003
  114. FULMETA [Concomitant]
     Active Substance: MOMETASONE
     Indication: PRODUCT USED FOR UNKNOWN INDICATION
     Route: 065
     Dates: start: 201106
  115. ACETAMINOPHEN. [Concomitant]
     Active Substance: ACETAMINOPHEN
     Route: 065
     Dates: start: 20130721, end: 20130723
  116. ZOMETA [Concomitant]
     Active Substance: ZOLEDRONIC ACID
     Indication: PRODUCT USED FOR UNKNOWN INDICATION
     Route: 065
     Dates: start: 20110907
  117. MIYA-BM [Concomitant]
     Active Substance: CLOSTRIDIUM BUTYRICUM SPORES STRAIN M-55
     Route: 065
     Dates: start: 20140730, end: 20140820
  118. MEDICON [Concomitant]
     Active Substance: DEXTROMETHORPHAN HYDROBROMIDE
     Indication: ADVERSE EVENT
     Route: 065
     Dates: start: 20150104, end: 20150107
  119. FLUOROMETHOLONE. [Concomitant]
     Active Substance: FLUOROMETHOLONE
     Route: 065
     Dates: start: 20170902, end: 20170927
  120. BROMFENAC SODIUM [Concomitant]
     Active Substance: BROMFENAC SODIUM
     Indication: PRODUCT USED FOR UNKNOWN INDICATION
     Route: 065
     Dates: start: 20151001, end: 20160217
  121. ELOTUZUMAB. [Suspect]
     Active Substance: ELOTUZUMAB
     Dosage: 10 MILLIGRAM/KILOGRAM
     Route: 041
     Dates: start: 20140820
  122. ALLEGRA [Concomitant]
     Active Substance: FEXOFENADINE HYDROCHLORIDE
     Indication: ADVERSE EVENT
     Route: 065
     Dates: start: 20121026, end: 20121031
  123. ACETAMINOPHEN. [Concomitant]
     Active Substance: ACETAMINOPHEN
     Route: 065
     Dates: start: 20140720, end: 20140725
  124. ACETAMINOPHEN. [Concomitant]
     Active Substance: ACETAMINOPHEN
     Route: 065
     Dates: start: 20150609, end: 20150609
  125. TENELIGIPTIN HYDROBROMIDE HYDRATE [Concomitant]
     Route: 065
     Dates: start: 20140124
  126. TENELIGIPTIN HYDROBROMIDE HYDRATE [Concomitant]
     Route: 065
     Dates: start: 20141031
  127. LEVOFLOXACIN HEMIHYDRATE [Concomitant]
     Active Substance: LEVOFLOXACIN
     Route: 065
     Dates: start: 20170803, end: 20170803
  128. ACETYLSALICYLIC ACID [Concomitant]
     Active Substance: ASPIRIN
     Indication: PRODUCT USED FOR UNKNOWN INDICATION
     Route: 065
     Dates: start: 20120725
  129. SOLACET F [Concomitant]
     Route: 065
     Dates: start: 20140720, end: 20140722
  130. KAIGEN [Concomitant]
     Active Substance: ACETAMINOPHEN\CAFFEINE\CINNAMON\GINGER\GLYCYRRHIZA GLABRA\METHYLEPHEDRINE HYDROCHLORIDE, (+/-)-
     Route: 065
     Dates: start: 20150917, end: 20150922
  131. KAIGEN [Concomitant]
     Active Substance: ACETAMINOPHEN\CAFFEINE\CINNAMON\GINGER\GLYCYRRHIZA GLABRA\METHYLEPHEDRINE HYDROCHLORIDE, (+/-)-
     Route: 065
     Dates: start: 20161130, end: 20161201
  132. KAIGEN [Concomitant]
     Active Substance: ACETAMINOPHEN\CAFFEINE\CINNAMON\GINGER\GLYCYRRHIZA GLABRA\METHYLEPHEDRINE HYDROCHLORIDE, (+/-)-
     Route: 065
     Dates: start: 20161219, end: 20161221
  133. EPRAZINONE HYDROCHLORIDE [Concomitant]
     Active Substance: EPRAZINONE HYDROCHLORIDE
     Route: 065
     Dates: start: 20160127, end: 20160129
  134. EPRAZINONE HYDROCHLORIDE [Concomitant]
     Active Substance: EPRAZINONE HYDROCHLORIDE
     Route: 065
     Dates: start: 20161221, end: 20170111
  135. AZUNOL [Concomitant]
     Active Substance: SODIUM GUALENATE
     Indication: ADVERSE EVENT
     Route: 065
     Dates: start: 20150722, end: 20150726

REACTIONS (1)
  - Colitis [Recovered/Resolved]

NARRATIVE: CASE EVENT DATE: 20140720
